FAERS Safety Report 9285065 (Version 3)
Quarter: 2015Q2

REPORT INFORMATION
  Report Type: Spontaneous
  Country: US (occurrence: US)
  Receive Date: 20130513
  Receipt Date: 20150524
  Transmission Date: 20150821
  Serious: No
  Sender: FDA-Public Use
  Company Number: US-JNJFOC-20130500772

PATIENT
  Sex: Female
  Weight: 133.81 kg

DRUGS (4)
  1. DURAGESIC [Suspect]
     Active Substance: FENTANYL
     Indication: BRAIN OPERATION
     Route: 062
     Dates: start: 2013
  2. DURAGESIC [Suspect]
     Active Substance: FENTANYL
     Indication: BRAIN OPERATION
     Route: 062
     Dates: start: 2012, end: 2012
  3. DURAGESIC [Suspect]
     Active Substance: FENTANYL
     Indication: NEURALGIA
     Route: 062
     Dates: start: 2013
  4. DURAGESIC [Suspect]
     Active Substance: FENTANYL
     Indication: NEURALGIA
     Route: 062
     Dates: start: 2012, end: 2012

REACTIONS (4)
  - Application site erythema [Not Recovered/Not Resolved]
  - Treatment noncompliance [Not Recovered/Not Resolved]
  - Pain [Recovered/Resolved]
  - Product quality issue [Unknown]

NARRATIVE: CASE EVENT DATE: 2012
